FAERS Safety Report 4533909-9 (Version None)
Quarter: 2005Q1

REPORT INFORMATION
  Report Type: 
  Country: None (occurrence: None)
  Receive Date: 20041202
  Receipt Date: 20040818
  Transmission Date: 20050727
  Serious: Yes (Death)
  Sender: FDA-Public Use
  Company Number: 378186

PATIENT
  Age: 25 Year
  Sex: Female

DRUGS (3)
  1. VALIUM [Suspect]
     Dosage: 10 MG    3 PER DAY    ORAL
     Route: 048
     Dates: start: 20010115
  2. COCAINE (COCAINE) [Suspect]
  3. METHADONE (METHADONE) [Suspect]

REACTIONS (1)
  - ACCIDENTAL OVERDOSE [None]
